FAERS Safety Report 9029699 (Version 2)
Quarter: 2013Q3

REPORT INFORMATION
  Report Type: Report from Study
  Country: BR (occurrence: BR)
  Receive Date: 20130124
  Receipt Date: 20130710
  Transmission Date: 20140515
  Serious: Yes (Other)
  Sender: FDA-Public Use
  Company Number: BR-ABBOTT-13P-020-1037814-00

PATIENT
  Sex: Female
  Weight: 56 kg

DRUGS (6)
  1. HUMIRA [Suspect]
     Indication: RHEUMATOID ARTHRITIS
     Route: 058
     Dates: start: 20110507, end: 201210
  2. HUMIRA [Suspect]
     Route: 058
     Dates: start: 201211
  3. ARAVA [Concomitant]
     Indication: RHEUMATOID ARTHRITIS
     Route: 048
     Dates: start: 201201
  4. RIVOTRIL [Concomitant]
     Indication: INSOMNIA
     Dosage: DAILY
     Route: 048
     Dates: start: 201210
  5. RIVOTRIL [Concomitant]
     Indication: PAIN
  6. METHOTREXATO [Concomitant]
     Indication: RHEUMATOID ARTHRITIS
     Route: 048
     Dates: start: 201210

REACTIONS (8)
  - Abdominal hernia [Unknown]
  - Spinal disorder [Not Recovered/Not Resolved]
  - Chondropathy [Unknown]
  - Anaemia [Unknown]
  - Procedural pain [Not Recovered/Not Resolved]
  - Injection site pain [Not Recovered/Not Resolved]
  - Cyst [Not Recovered/Not Resolved]
  - Arthropathy [Not Recovered/Not Resolved]
